FAERS Safety Report 5375302-5 (Version None)
Quarter: 2007Q2

REPORT INFORMATION
  Report Type: 
  Country: None (occurrence: None)
  Receive Date: 20070629
  Receipt Date: 20060717
  Transmission Date: 20071010
  Serious: Yes (Other)
  Sender: FDA-Public Use
  Company Number: US-ASTRAZENECA-2006UW14631

PATIENT
  Age: 83 Year
  Sex: Female
  Weight: 63.5 kg

DRUGS (7)
  1. TAMOXIFEN CITRATE [Suspect]
     Indication: BREAST CANCER
     Route: 048
  2. ARIMIDEX [Suspect]
     Indication: BREAST CANCER
     Route: 048
  3. SYNTHROID [Concomitant]
  4. LANTUS [Concomitant]
  5. GLIPIZIDE [Concomitant]
  6. AEROSOL [Concomitant]
  7. SPIRIVA [Concomitant]

REACTIONS (3)
  - BREAST CANCER [None]
  - FEELING HOT [None]
  - HYPERHIDROSIS [None]
